FAERS Safety Report 14742896 (Version 1)
Quarter: 2018Q2

REPORT INFORMATION
  Report Type: Spontaneous
  Country: US (occurrence: US)
  Receive Date: 20180410
  Receipt Date: 20180410
  Transmission Date: 20180711
  Serious: No
  Sender: FDA-Public Use
  Company Number: US-009507513-1804USA003833

PATIENT
  Sex: Female

DRUGS (2)
  1. IMPLANON [Suspect]
     Active Substance: ETONOGESTREL
     Indication: CONTRACEPTION
     Dosage: 1 DF, UNK
     Route: 059
     Dates: start: 201705
  2. ST JOHNS WORT [Interacting]
     Active Substance: ST. JOHN^S WORT
     Dosage: 2 DF, QAM
     Route: 048
     Dates: start: 20180305

REACTIONS (3)
  - Vaginal discharge [Recovered/Resolved]
  - Drug interaction [Unknown]
  - Metrorrhagia [Recovered/Resolved]

NARRATIVE: CASE EVENT DATE: 201803
